FAERS Safety Report 7132237-5 (Version None)
Quarter: 2010Q4

REPORT INFORMATION
  Report Type: 
  Country: None (occurrence: None)
  Receive Date: 20101130
  Receipt Date: 20101130
  Transmission Date: 20110411
  Serious: Yes (Other)
  Sender: FDA-Public Use
  Company Number: None

PATIENT
  Sex: Female
  Weight: 71.6683 kg

DRUGS (1)
  1. RECLAST [Suspect]
     Indication: OSTEOPOROSIS
     Dosage: 5MG IV
     Route: 042
     Dates: start: 20101012, end: 20101012

REACTIONS (3)
  - EYE PAIN [None]
  - EYE SWELLING [None]
  - MYALGIA [None]
